FAERS Safety Report 6413898-2 (Version None)
Quarter: 2009Q4

REPORT INFORMATION
  Report Type: 
  Country: None (occurrence: None)
  Receive Date: 20091026
  Receipt Date: 20091015
  Transmission Date: 20100525
  Serious: Yes (Life-Threatening, Hospitalization)
  Sender: FDA-Public Use
  Company Number: B0597033A

PATIENT
  Sex: Male

DRUGS (17)
  1. CARVEDILOL [Suspect]
     Dosage: 10MG PER DAY
     Route: 048
     Dates: start: 20090813, end: 20090923
  2. BLINDED TRIAL MEDICATION [Suspect]
     Indication: CORONARY ARTERY DISEASE
     Route: 048
     Dates: start: 20090810
  3. DIGOXIN [Concomitant]
     Dates: start: 20090806, end: 20090923
  4. FLIVAS [Concomitant]
     Dates: start: 20090806
  5. ASPIRIN [Concomitant]
     Dates: start: 20090806
  6. CONIEL [Concomitant]
     Indication: HYPERTENSION
     Dates: start: 20090806, end: 20090923
  7. GASTER D [Concomitant]
     Dates: start: 20090806
  8. ITOROL [Concomitant]
     Dates: start: 20090806
  9. BEZATOL SR [Concomitant]
     Dates: start: 20090806
  10. NICORANDIL [Concomitant]
     Dates: start: 20090806
  11. MEVALOTIN [Concomitant]
     Dates: start: 20090815
  12. EURAX [Concomitant]
     Dates: start: 20090813
  13. NIZORAL [Concomitant]
     Dates: start: 20090814
  14. MECOBALAMIN [Concomitant]
     Indication: NEUROPATHY PERIPHERAL
  15. MAALOX [Concomitant]
     Dates: start: 20090901
  16. GLYCERYL TRINITRATE [Concomitant]
     Dates: start: 20090908
  17. EMORFAZONE [Concomitant]
     Indication: NEUROPATHY PERIPHERAL
     Dates: start: 20090908

REACTIONS (3)
  - CHEST PAIN [None]
  - LOSS OF CONSCIOUSNESS [None]
  - PRINZMETAL ANGINA [None]
